FAERS Safety Report 23377434 (Version 1)
Quarter: 2024Q1

REPORT INFORMATION
  Report Type: Spontaneous
  Country: US (occurrence: None)
  Receive Date: 20240108
  Receipt Date: 20240108
  Transmission Date: 20240410
  Serious: No
  Sender: FDA-Public Use
  Company Number: 2024A003192

PATIENT

DRUGS (1)
  1. SYMLIN [Suspect]
     Active Substance: PRAMLINTIDE ACETATE
     Dosage: 1.5ML UNKNOWN
     Route: 058

REACTIONS (7)
  - Blood glucose increased [Unknown]
  - Intentional dose omission [Unknown]
  - Device use issue [Unknown]
  - Device delivery system issue [Unknown]
  - Wrong technique in device usage process [Unknown]
  - Incorrect dose administered by device [Unknown]
  - Blood pressure increased [Unknown]
